FAERS Safety Report 4437486-2 (Version None)
Quarter: 2004Q3

REPORT INFORMATION
  Report Type: 
  Country: None (occurrence: None)
  Receive Date: 20040827
  Receipt Date: 20040818
  Transmission Date: 20050211
  Serious: Yes (Hospitalization, Disabling)
  Sender: FDA-Public Use
  Company Number: GBWYE991120AUG04

PATIENT
  Age: 33 Year
  Sex: Female

DRUGS (2)
  1. BENZHEXOL (TRIHEXYPHENIDYL, TABLET) [Suspect]
     Indication: DYSTONIA
     Dosage: SEE IMAGE
     Route: 048
     Dates: end: 20040518
  2. BENZHEXOL (TRIHEXYPHENIDYL, TABLET) [Suspect]
     Indication: DYSTONIA
     Dosage: SEE IMAGE
     Route: 048
     Dates: start: 20040201

REACTIONS (1)
  - MANIA [None]
